FAERS Safety Report 7726542-9 (Version None)
Quarter: 2011Q3

REPORT INFORMATION
  Report Type: 
  Country: None (occurrence: None)
  Receive Date: 20110902
  Receipt Date: 20110823
  Transmission Date: 20111222
  Serious: Yes (Other)
  Sender: FDA-Public Use
  Company Number: PHHY2011FR53321

PATIENT
  Sex: Female
  Weight: 71 kg

DRUGS (7)
  1. BECLOMETHASONE DIPROPIONATE [Concomitant]
     Dosage: 1 DF, QD
  2. HYPERIUM [Concomitant]
     Dosage: 1 MG, QD
     Dates: end: 20110513
  3. SUTENT [Concomitant]
     Dosage: 37.5 MG, DAILY
     Dates: start: 20100801
  4. SANDOSTATIN LAR [Suspect]
     Indication: CARCINOID SYNDROME
     Dosage: UNK
     Route: 030
     Dates: start: 20070101, end: 20110513
  5. FORADIL [Concomitant]
  6. LEVOTHYROXINE SODIUM [Concomitant]
     Dosage: 125 UG, DAILY
  7. VALSARTAN  AND HYDROCHLOROTHIAZIDE [Concomitant]
     Dates: end: 20110513

REACTIONS (13)
  - ANAPHYLACTIC SHOCK [None]
  - VOMITING [None]
  - NAUSEA [None]
  - FEELING HOT [None]
  - MALAISE [None]
  - LOSS OF CONSCIOUSNESS [None]
  - FACE OEDEMA [None]
  - BLOOD PRESSURE DECREASED [None]
  - OEDEMA PERIPHERAL [None]
  - CHONDROCALCINOSIS [None]
  - JOINT SWELLING [None]
  - ERYTHEMA [None]
  - ARTHRALGIA [None]
